FAERS Safety Report 5100165-2 (Version None)
Quarter: 2006Q3

REPORT INFORMATION
  Report Type: 
  Country: None (occurrence: None)
  Receive Date: 20060908
  Receipt Date: 20060817
  Transmission Date: 20061208
  Serious: Yes (Hospitalization)
  Sender: FDA-Public Use
  Company Number: JP-ABBOTT-06P-087-0341049-00

PATIENT
  Age: 75 Year
  Sex: Female

DRUGS (1)
  1. AKINETON [Suspect]
     Indication: PARKINSONISM
     Route: 030
     Dates: start: 20051017, end: 20051018

REACTIONS (1)
  - DYSTONIA [None]
